FAERS Safety Report 9730005 (Version 4)
Quarter: 2014Q1

REPORT INFORMATION
  Report Type: Spontaneous
  Country: CA (occurrence: CA)
  Receive Date: 20131204
  Receipt Date: 20140128
  Transmission Date: 20141002
  Serious: Yes (Other)
  Sender: FDA-Public Use
  Company Number: CHPA2013CA017416

PATIENT
  Sex: Male

DRUGS (5)
  1. OTRIVIN COLD + ALLERGY DECONGESTANT NASAL SPRAYWITH MOISTURISERS [Suspect]
     Indication: NASOPHARYNGITIS
     Dosage: UNK, UNK
     Route: 045
     Dates: start: 1993
  2. OTRIVIN COLD + ALLERGY DECONGESTANT NASAL SPRAYWITH MOISTURISERS [Suspect]
     Indication: HYPERSENSITIVITY
  3. OTRIVIN COLD + ALLERGY DECONGESTANT NASAL SPRAYWITH MOISTURISERS [Suspect]
     Indication: INSOMNIA
  4. OTRIVIN COLD + ALLERGY DECONGESTANT NASAL SPRAYWITH MOISTURISERS [Suspect]
     Indication: OFF LABEL USE
  5. INFLUENZA VACCINE [Suspect]
     Indication: IMMUNISATION
     Dosage: UNK, ONCE/SINGLE
     Route: 065

REACTIONS (8)
  - Diabetes mellitus [Not Recovered/Not Resolved]
  - Pneumonia [Not Recovered/Not Resolved]
  - Influenza [Not Recovered/Not Resolved]
  - Pyrexia [Not Recovered/Not Resolved]
  - Chills [Not Recovered/Not Resolved]
  - Immunodeficiency [Unknown]
  - Insomnia [Unknown]
  - Therapeutic response unexpected [Unknown]
